FAERS Safety Report 17691731 (Version 1)
Quarter: 2020Q2

REPORT INFORMATION
  Report Type: Spontaneous
  Country: US (occurrence: US)
  Receive Date: 20200418
  Receipt Date: 20200418
  Transmission Date: 20200714
  Serious: Yes (Death, Hospitalization)
  Sender: FDA-Public Use
  Company Number: None

PATIENT
  Age: 69 Year
  Sex: Male
  Weight: 60.9 kg

DRUGS (1)
  1. CARBOPLATIN. [Suspect]
     Active Substance: CARBOPLATIN
     Dates: end: 20200204

REACTIONS (10)
  - Asthenia [None]
  - Hypophagia [None]
  - Unresponsive to stimuli [None]
  - Tachycardia [None]
  - Constipation [None]
  - Lethargy [None]
  - Pleural effusion [None]
  - Generalised oedema [None]
  - Abnormal loss of weight [None]
  - Anaemia [None]

NARRATIVE: CASE EVENT DATE: 20200312
